FAERS Safety Report 4367520-X (Version None)
Quarter: 2004Q2

REPORT INFORMATION
  Report Type: 
  Country: None (occurrence: None)
  Receive Date: 20040601
  Receipt Date: 20031219
  Transmission Date: 20050107
  Serious: Yes (Death)
  Sender: FDA-Public Use
  Company Number: NL-ROCHE-354566

PATIENT
  Age: 22 Year
  Sex: Male

DRUGS (2)
  1. ROACCUTANE [Suspect]
     Indication: ACNE CONGLOBATA
     Route: 065
  2. ROACCUTANE [Suspect]
     Dosage: DOSAGE HAD BEEN INCREASED BY PATIENT.
     Route: 065

REACTIONS (8)
  - COMPLETED SUICIDE [None]
  - DECREASED APPETITE [None]
  - DEPRESSION [None]
  - INSOMNIA [None]
  - MEDICATION ERROR [None]
  - PERSONALITY DISORDER [None]
  - SUICIDAL IDEATION [None]
  - TREATMENT NONCOMPLIANCE [None]
